FAERS Safety Report 5678654-1 (Version None)
Quarter: 2008Q1

REPORT INFORMATION
  Report Type: 
  Country: None (occurrence: None)
  Receive Date: 20080325
  Receipt Date: 20080313
  Transmission Date: 20080703
  Serious: Yes (Life-Threatening, Hospitalization)
  Sender: FDA-Public Use
  Company Number: US-AMGEN-US269790

PATIENT
  Age: 5 Year
  Sex: Male
  Weight: 41 kg

DRUGS (4)
  1. ENBREL [Suspect]
     Indication: JUVENILE ARTHRITIS
     Route: 058
  2. METHOTREXATE [Concomitant]
     Route: 065
  3. PRELONE [Concomitant]
     Route: 065
  4. NAPROSYN [Concomitant]
     Route: 048

REACTIONS (5)
  - COUGH [None]
  - HALLUCINATION [None]
  - NASOPHARYNGITIS [None]
  - PHARYNGEAL ERYTHEMA [None]
  - PSYCHOTIC DISORDER [None]
